FAERS Safety Report 22256771 (Version 2)
Quarter: 2023Q2

REPORT INFORMATION
  Report Type: Spontaneous
  Country: FR (occurrence: FR)
  Receive Date: 20230426
  Receipt Date: 20230602
  Transmission Date: 20230722
  Serious: Yes (Other)
  Sender: FDA-Public Use
  Company Number: FR-JNJFOC-20230449879

PATIENT
  Sex: Female

DRUGS (1)
  1. SIMPONI [Suspect]
     Active Substance: GOLIMUMAB
     Indication: Colitis ulcerative
     Dosage: 50 (UNITS NOT SPECIFIED)
     Route: 058
     Dates: start: 2019

REACTIONS (7)
  - Diabetes mellitus [Unknown]
  - Tuberculosis [Unknown]
  - Peripheral swelling [Unknown]
  - Rash macular [Unknown]
  - Back pain [Unknown]
  - Contusion [Unknown]
  - Cough [Unknown]
